FAERS Safety Report 23718720 (Version 1)
Quarter: 2024Q2

REPORT INFORMATION
  Report Type: Spontaneous
  Country: DE (occurrence: DE)
  Receive Date: 20240408
  Receipt Date: 20240408
  Transmission Date: 20240715
  Serious: Yes (Hospitalization, Other)
  Sender: FDA-Public Use
  Company Number: DE-BRISTOL-MYERS SQUIBB COMPANY-2024-027296

PATIENT
  Age: 72 Year
  Sex: Male
  Weight: 93 kg

DRUGS (26)
  1. OXALIPLATIN [Suspect]
     Active Substance: OXALIPLATIN
     Indication: Gastric cancer
     Dosage: UNK
     Route: 065
  2. FLUOROURACIL [Suspect]
     Active Substance: FLUOROURACIL
     Indication: Gastric cancer
     Dosage: UNK
     Route: 065
  3. OPDIVO [Suspect]
     Active Substance: NIVOLUMAB
     Indication: Oesophageal adenocarcinoma
     Dosage: 240 MILLIGRAM
     Route: 042
     Dates: start: 20231110, end: 20240214
  4. POLYETHYLENE GLYCOL 3350\POTASSIUM CHLORIDE\SODIUM BICARBONATE\SODIUM [Concomitant]
     Active Substance: POLYETHYLENE GLYCOL 3350\POTASSIUM CHLORIDE\SODIUM BICARBONATE\SODIUM CHLORIDE
     Indication: Product used for unknown indication
     Dosage: 30 MILLIGRAM, QD (DAILY IF NEEDED)
     Route: 048
  5. AMPHO-MORONAL [Concomitant]
     Active Substance: AMPHOTERICIN B
     Indication: Product used for unknown indication
     Dosage: 10 MILLIGRAM, Q6H (10MG 4 TIMES PER DAYS AFTER MEALS AND BEFORE SLEEPING)
     Route: 065
  6. Bepanthen antiseptic [Concomitant]
     Indication: Injection site infection
     Dosage: BID 50MG/G 5MG/G, TWICE PER DAY A THIN LAYER FOR LOCAL PEG INJECTION SITES INFECTION UNDER CHEMOTHE
     Route: 061
  7. Bepanthen antiseptic [Concomitant]
     Dosage: 50 MILLIGRAM PER MILLILITRE
     Route: 061
  8. CETIRIZINE HYDROCHLORIDE [Concomitant]
     Active Substance: CETIRIZINE HYDROCHLORIDE
     Indication: Hypersensitivity
     Dosage: 10 MILLIGRAM, QD
     Route: 048
  9. METAMIZOLE [Concomitant]
     Active Substance: METAMIZOLE
     Indication: Product used for unknown indication
     Dosage: 40 GTT DROPS, Q6H, 500 MG/ML DROPS ONLY, WHEN BLOOD PRESSURE SYSTOLIC IS GREATER THAN 110 MMHG
     Route: 048
  10. AMOXICLAV ARISTO [Concomitant]
     Indication: Product used for unknown indication
     Dosage: 875MG/125MG TABLETS IN THE MORNING AND EVENING STARTING ON 20-NOV FOR 5 DAYS
     Route: 065
  11. CARBOHYDRATES\FATTY ACIDS\MINERALS\PROTEIN\VITAMINS [Concomitant]
     Active Substance: CARBOHYDRATES\FATTY ACIDS\MINERALS\PROTEIN\VITAMINS
     Indication: Oesophageal carcinoma
     Dosage: FRESUBIN 2 KCAL DRINK IN A BOTTLE (HIGH-CALORIE,HIGH-PROTEIN NUTRITIONAL DRINK) 2-3 TIMES A DAY
     Route: 048
  12. DEXAMETHASONE [Concomitant]
     Active Substance: DEXAMETHASONE
     Indication: Product used for unknown indication
     Dosage: 8 MG TABLET IN THE MORNING AND EVENING (DAY BEFORE CHEMOTHERAPY)
     Route: 065
  13. URAPIDIL [Concomitant]
     Active Substance: URAPIDIL
     Indication: Product used for unknown indication
     Dosage: 30 MILLIGRAM (DAILY IF NEEDED)
     Route: 048
  14. FOLIC ACID [Concomitant]
     Active Substance: FOLIC ACID
     Indication: Product used for unknown indication
     Dosage: UNK
     Route: 065
  15. CARVEDILOL STADA [Concomitant]
     Indication: Product used for unknown indication
     Dosage: 25 MG TABLETS, ONE HALF TABLET IN THE MORNING
     Route: 065
  16. METOCLOPRAMIDE HYDROCHLORIDE [Concomitant]
     Active Substance: METOCLOPRAMIDE HYDROCHLORIDE
     Indication: Product used for unknown indication
     Dosage: 10 MG TABLETS AS NEEDED (MAX. 3 TIMES PER DAY),
     Route: 048
  17. METOCLOPRAMIDE HYDROCHLORIDE [Concomitant]
     Active Substance: METOCLOPRAMIDE HYDROCHLORIDE
     Dosage: 10 MG TABLETS AS NEEDED (MAX. 3 TIMES PER DAY)
     Route: 048
  18. PREDNISOLONE [Concomitant]
     Active Substance: PREDNISOLONE
     Indication: Product used for unknown indication
     Dosage: 20 MILLIGRAM, QD, IN THE MORNING (DAY 1 AND 2 AFTER CHEMOTHERAPY)
     Route: 048
  19. CARVEDILOL [Concomitant]
     Active Substance: CARVEDILOL
     Indication: Product used for unknown indication
     Dosage: 12.5 MILLIGRAM, QD, 25 MG TABLETS, ONE HALF TABLET IN THE MORNING
     Route: 048
  20. ONDANSETRON HYDROCHLORIDE [Concomitant]
     Active Substance: ONDANSETRON HYDROCHLORIDE
     Indication: Product used for unknown indication
     Dosage: 8MG ORALLY DISSOLVING TABLET, AS NEEDED (MAX. TWICE PER DAY)
     Route: 048
  21. ONDANSETRON HYDROCHLORIDE [Concomitant]
     Active Substance: ONDANSETRON HYDROCHLORIDE
     Dosage: 8 MILLIGRAM, BID (ORALLY DISSOLVING TABLET, AS NEEDED (MAX. TWICE PER DAY))
     Route: 048
  22. Amlodipin hexal [Concomitant]
     Indication: Product used for unknown indication
     Dosage: 5MG TABLETS IN THE MORNING (PAUSED)
     Route: 065
  23. FENTANYL TRANSDERMAL SYSTEM [Concomitant]
     Active Substance: FENTANYL
     Indication: Product used for unknown indication
     Dosage: 12 ?G/H (0.0125 MG/HOUR) MATRIX TRANSDERMAL PATCH EVERY 3 DAYS
     Route: 062
  24. Aprepilor [Concomitant]
     Indication: Product used for unknown indication
     Dosage: 80 MILLIGRAM 25MG (DAY ONE) 80MG (DAY 2 AND 3)
     Route: 065
  25. Aprepilor [Concomitant]
     Dosage: 125 MILLIGRAM 25MG (DAY ONE) 80MG (DAY 2 AND 3)
     Route: 065
  26. ABSTRAL [Concomitant]
     Active Substance: FENTANYL CITRATE
     Indication: Product used for unknown indication
     Dosage: 100 MICROGRAM, BID (DAILY IF REQUIRED
     Route: 060

REACTIONS (7)
  - Dyspnoea [Recovered/Resolved]
  - Pyrexia [Recovered/Resolved]
  - Hypersensitivity [Recovering/Resolving]
  - Pneumonitis [Unknown]
  - Hyponatraemia [Unknown]
  - Infection [Recovering/Resolving]
  - Rash [Recovered/Resolved]

NARRATIVE: CASE EVENT DATE: 20240110
